FAERS Safety Report 4993297-0 (Version None)
Quarter: 2006Q2

REPORT INFORMATION
  Report Type: 
  Country: None (occurrence: None)
  Receive Date: 20060505
  Receipt Date: 20050811
  Transmission Date: 20061013
  Serious: Yes (Other)
  Sender: FDA-Public Use
  Company Number: PHEH2005US08928

PATIENT
  Sex: Female

DRUGS (4)
  1. AREDIA [Suspect]
     Indication: METASTASES TO BONE
     Route: 042
  2. ZOMETA [Suspect]
     Indication: METASTASES TO BONE
     Route: 042
  3. TAMOXIFEN CITRATE [Concomitant]
  4. EFFEXOR /USA/ [Concomitant]
     Dosage: 75 MG, QD

REACTIONS (18)
  - ACTINOMYCOSIS [None]
  - BONE DEBRIDEMENT [None]
  - BONE DISORDER [None]
  - BREATH ODOUR [None]
  - CHRONIC SINUSITIS [None]
  - DENTAL CARIES [None]
  - DENTURE WEARER [None]
  - FIBROSIS [None]
  - GINGIVITIS [None]
  - ORAL INFECTION [None]
  - ORAL MUCOSAL EXFOLIATION [None]
  - OSTEOMYELITIS [None]
  - OSTEONECROSIS [None]
  - PERIODONTAL OPERATION [None]
  - PERIODONTITIS [None]
  - PRIMARY SEQUESTRUM [None]
  - PSEUDOMONAS INFECTION [None]
  - TOOTH LOSS [None]
